FAERS Safety Report 13074179 (Version 2)
Quarter: 2017Q1

REPORT INFORMATION
  Report Type: Report from Study
  Country: JP (occurrence: JP)
  Receive Date: 20161230
  Receipt Date: 20170209
  Transmission Date: 20170428
  Serious: Yes (Death)
  Sender: FDA-Public Use
  Company Number: JP-ASTRAZENECA-2016SF37261

PATIENT
  Age: 68 Year
  Sex: Male
  Weight: 62 kg

DRUGS (10)
  1. AUGMENTIN [Concomitant]
     Active Substance: AMOXICILLIN\CLAVULANATE POTASSIUM
     Dosage: 1500 MG NUMBER OF SEPARATE DOSAGES UNKNOWN
     Route: 048
     Dates: start: 20161007, end: 20161016
  2. LANSOPRAZOLE OD [Concomitant]
     Active Substance: LANSOPRAZOLE
     Indication: GASTRIC ULCER HAEMORRHAGE
     Dosage: 30 MG NUMBER OF SEPARATE DOSAGES UNKNOWN
     Route: 048
     Dates: start: 20160301, end: 20161205
  3. LIXIANA [Concomitant]
     Active Substance: EDOXABAN TOSILATE MONOHYDRATE
     Indication: PULMONARY ARTERY THROMBOSIS
     Dosage: 60 MG NUMBER OF SEPARATE DOSAGES UNKNOWN
     Route: 048
     Dates: start: 20160712, end: 20161202
  4. RINDERON V [Concomitant]
     Active Substance: BETAMETHASONE VALERATE
     Indication: BRAIN OEDEMA
     Dosage: 4 MG NUMBER OF SEPARATE DOSAGES UNKNOWN
     Route: 048
     Dates: start: 20160728, end: 20160923
  5. NAUZELIN [Concomitant]
     Active Substance: DOMPERIDONE
     Indication: NAUSEA
     Route: 065
     Dates: start: 20160719, end: 20160724
  6. TAGRISSO [Suspect]
     Active Substance: OSIMERTINIB
     Indication: NON-SMALL CELL LUNG CANCER
     Route: 048
     Dates: start: 20160719, end: 20161202
  7. RINDERON V [Concomitant]
     Active Substance: BETAMETHASONE VALERATE
     Indication: BRAIN OEDEMA
     Dosage: 3 MG NUMBER OF SEPARATE DOSAGES UNKNOWN
     Route: 048
     Dates: start: 20160924, end: 20161021
  8. THYRADIN S [Concomitant]
     Active Substance: LEVOTHYROXINE SODIUM
     Indication: BLOOD THYROID STIMULATING HORMONE INCREASED
     Dosage: 25 UG NUMBER OF SEPARATE DOSAGES UNKNOWN
     Route: 048
     Dates: start: 20160923, end: 20161205
  9. RINDERON V [Concomitant]
     Active Substance: BETAMETHASONE VALERATE
     Indication: BRAIN OEDEMA
     Dosage: 2 MG NUMBER OF SEPARATE DOSAGES UNKNOWN
     Route: 048
     Dates: start: 20161021, end: 20161202
  10. RINDERON V [Concomitant]
     Active Substance: BETAMETHASONE VALERATE
     Indication: BRAIN OEDEMA
     Dosage: 1 MG NUMBER OF SEPARATE DOSAGES UNKNOWN
     Route: 048
     Dates: start: 20160106, end: 20160726

REACTIONS (1)
  - Interstitial lung disease [Fatal]

NARRATIVE: CASE EVENT DATE: 20161202
